FAERS Safety Report 6017353-3 (Version None)
Quarter: 2008Q4

REPORT INFORMATION
  Report Type: 
  Country: None (occurrence: None)
  Receive Date: 20081219
  Receipt Date: 20081204
  Transmission Date: 20090506
  Serious: Yes (Other)
  Sender: FDA-Public Use
  Company Number: 2008BM000242

PATIENT
  Age: 26 Year
  Sex: Female
  Weight: 27 kg

DRUGS (2)
  1. NAGLAZYME [Suspect]
     Indication: MUCOPOLYSACCHARIDOSIS VI
     Dosage: 25 MG;QW; IVDRP
     Route: 041
     Dates: start: 20060406, end: 20081202
  2. FLEBOCORTID [Concomitant]

REACTIONS (5)
  - CHOLELITHIASIS [None]
  - DIARRHOEA [None]
  - INFUSION RELATED REACTION [None]
  - OEDEMA [None]
  - VOMITING [None]
